FAERS Safety Report 7034624-2 (Version None)
Quarter: 2010Q4

REPORT INFORMATION
  Report Type: 
  Country: None (occurrence: None)
  Receive Date: 20101008
  Receipt Date: 20101006
  Transmission Date: 20110411
  Serious: Yes (Death, Hospitalization)
  Sender: FDA-Public Use
  Company Number: JP-B.I. PHARMACEUTICALS,INC./RIDGEFIELD-2010-BP-10309NB

PATIENT
  Sex: Female
  Weight: 41.2 kg

DRUGS (4)
  1. SPIRIVA [Suspect]
     Indication: EMPHYSEMA
     Dosage: 5 MCG
     Route: 055
     Dates: start: 20100608, end: 20100618
  2. LENDORMIN [Concomitant]
     Indication: INSOMNIA
     Dosage: 0.25 MG
     Route: 048
     Dates: start: 20030405
  3. GRIMAC [Concomitant]
     Dosage: 2 G
     Route: 048
     Dates: start: 20070821
  4. TAGAMET [Concomitant]
     Dosage: 2 G
     Route: 048
     Dates: start: 20070821

REACTIONS (2)
  - INTERSTITIAL LUNG DISEASE [None]
  - RESPIRATORY FAILURE [None]
